FAERS Safety Report 4630037-9 (Version None)
Quarter: 2005Q2

REPORT INFORMATION
  Report Type: 
  Country: None (occurrence: None)
  Receive Date: 20050408
  Receipt Date: 20050318
  Transmission Date: 20051028
  Serious: Yes (Hospitalization)
  Sender: FDA-Public Use
  Company Number: JP-ROCHE-399684

PATIENT
  Age: 27 Year
  Sex: Female

DRUGS (7)
  1. TAMIFLU [Suspect]
     Indication: INFLUENZA
     Route: 048
     Dates: start: 20050309, end: 20050310
  2. FLAVERIC [Concomitant]
     Indication: DRUG USE FOR UNKNOWN INDICATION
     Route: 048
     Dates: start: 20050309, end: 20050310
  3. TRANEXAMIC ACID [Concomitant]
     Indication: DRUG USE FOR UNKNOWN INDICATION
     Dosage: DRUG NAME REPORTED AS ^NICOLDA^
     Route: 048
     Dates: start: 20050309, end: 20050310
  4. NOVAMIN [Concomitant]
     Indication: DRUG USE FOR UNKNOWN INDICATION
     Route: 048
     Dates: start: 20050309, end: 20050310
  5. CRYSTFAN [Concomitant]
     Indication: DRUG USE FOR UNKNOWN INDICATION
     Route: 042
     Dates: start: 20050309, end: 20050311
  6. GLUTATHIONE [Concomitant]
     Indication: DRUG USE FOR UNKNOWN INDICATION
     Dosage: PATIENT RECEIVED 200MG ONCE A DAY ON 9 MARCH, AND 200MG ONCE A DAY ON 11 MARCH ONLY. DRUG NAME REPO+
     Route: 042
     Dates: start: 20050309, end: 20050311
  7. UNSPECIFIED DRUG [Concomitant]
     Indication: DRUG USE FOR UNKNOWN INDICATION
     Dosage: DRUG REPORTED AS ^HYDROXOCOBALAMIN ACETATE (MASBLON)^
     Route: 042
     Dates: start: 20050310, end: 20050310

REACTIONS (8)
  - ABDOMINAL PAIN [None]
  - BACK PAIN [None]
  - DERMATITIS EXFOLIATIVE [None]
  - DRUG TOXICITY [None]
  - INSOMNIA [None]
  - PAIN [None]
  - PYREXIA [None]
  - RASH [None]
